FAERS Safety Report 9960065 (Version 2)
Quarter: 2014Q1

REPORT INFORMATION
  Report Type: Report from Study
  Country: US (occurrence: US)
  Receive Date: 20140305
  Receipt Date: 20140305
  Transmission Date: 20141002
  Serious: No
  Sender: FDA-Public Use
  Company Number: US-ABBVIE-12P-163-0912427-00

PATIENT
  Age: 30 Year
  Sex: Female

DRUGS (13)
  1. HUMIRA 40 MG/0.8 ML PEN [Suspect]
     Indication: RHEUMATOID ARTHRITIS
     Dates: start: 200906
  2. HUMIRA 40 MG/0.8 ML PEN [Suspect]
     Dates: start: 2010
  3. PLAQUENIL [Concomitant]
     Indication: RHEUMATOID ARTHRITIS
  4. NEXIUM [Concomitant]
     Indication: GASTROOESOPHAGEAL REFLUX DISEASE
  5. PROZAC [Concomitant]
     Indication: ANXIETY
     Dates: start: 2005
  6. XANAX [Concomitant]
     Indication: ANXIETY
  7. BIRTH CONTROL [Concomitant]
     Indication: PRODUCT USED FOR UNKNOWN INDICATION
  8. FLONASE [Concomitant]
     Indication: HYPERSENSITIVITY
  9. ZIRTEC [Concomitant]
     Indication: HYPERSENSITIVITY
  10. DEPO SHOT [Concomitant]
     Indication: CONTRACEPTION
  11. EFFEXOR SR [Concomitant]
     Indication: ANXIETY
  12. PREDNISONE [Concomitant]
     Indication: RHEUMATOID ARTHRITIS
  13. ARAVA [Concomitant]
     Indication: RHEUMATOID ARTHRITIS

REACTIONS (13)
  - Injection site pain [Not Recovered/Not Resolved]
  - Unevaluable event [Recovered/Resolved]
  - Arthritis [Recovered/Resolved]
  - Contusion [Not Recovered/Not Resolved]
  - Malaise [Not Recovered/Not Resolved]
  - Wrong technique in drug usage process [Not Recovered/Not Resolved]
  - Incorrect dose administered [Not Recovered/Not Resolved]
  - Injection site pain [Not Recovered/Not Resolved]
  - Injection site pain [Not Recovered/Not Resolved]
  - Muscle spasms [Not Recovered/Not Resolved]
  - Asthenia [Not Recovered/Not Resolved]
  - Musculoskeletal stiffness [Not Recovered/Not Resolved]
  - Fibromyalgia [Not Recovered/Not Resolved]
